FAERS Safety Report 9691770 (Version 1)
Quarter: 2013Q4

REPORT INFORMATION
  Report Type: Spontaneous
  Country: US (occurrence: US)
  Receive Date: 20131115
  Receipt Date: 20131115
  Transmission Date: 20140711
  Serious: Yes (Hospitalization, Other)
  Sender: FDA-Public Use
  Company Number: US-ABBVIE-13P-163-1167570-00

PATIENT
  Sex: Male
  Weight: 86.26 kg

DRUGS (8)
  1. HUMIRA [Suspect]
     Indication: CROHN^S DISEASE
     Dates: start: 2011, end: 201309
  2. KALETRA [Concomitant]
     Indication: HIV TEST POSITIVE
  3. TRUVADA [Concomitant]
     Indication: HIV TEST POSITIVE
  4. NORCO [Concomitant]
     Indication: PRODUCT USED FOR UNKNOWN INDICATION
  5. TRAMADOL [Concomitant]
     Indication: PRODUCT USED FOR UNKNOWN INDICATION
  6. MS CONTIN [Concomitant]
     Indication: PRODUCT USED FOR UNKNOWN INDICATION
  7. VITAMIN C [Concomitant]
     Indication: PRODUCT USED FOR UNKNOWN INDICATION
  8. PROBIOTICS [Concomitant]
     Indication: PRODUCT USED FOR UNKNOWN INDICATION

REACTIONS (15)
  - Local swelling [Recovering/Resolving]
  - Genital swelling [Recovering/Resolving]
  - Erythema [Recovering/Resolving]
  - Genital erythema [Recovering/Resolving]
  - Groin pain [Recovering/Resolving]
  - Gait disturbance [Recovering/Resolving]
  - Genital pain [Recovering/Resolving]
  - Cellulitis [Not Recovered/Not Resolved]
  - Cellulitis [Recovered/Resolved]
  - Beta haemolytic streptococcal infection [Recovered/Resolved]
  - Eczema [Recovering/Resolving]
  - Rash [Recovering/Resolving]
  - Skin ulcer [Not Recovered/Not Resolved]
  - Rectal ulcer [Not Recovered/Not Resolved]
  - Crohn^s disease [Not Recovered/Not Resolved]
